FAERS Safety Report 15615623 (Version 3)
Quarter: 2020Q2

REPORT INFORMATION
  Report Type: Spontaneous
  Country: US (occurrence: US)
  Receive Date: 20181114
  Receipt Date: 20200414
  Transmission Date: 20200713
  Serious: No
  Sender: FDA-Public Use
  Company Number: US-BIOGEN-2018BI00599928

PATIENT
  Sex: Female

DRUGS (1)
  1. TYSABRI [Suspect]
     Active Substance: NATALIZUMAB
     Indication: MULTIPLE SCLEROSIS
     Route: 050
     Dates: start: 20070507, end: 20141117

REACTIONS (4)
  - Stress [Unknown]
  - Prescribed underdose [Not Recovered/Not Resolved]
  - Pain in extremity [Unknown]
  - Depression [Unknown]
